FAERS Safety Report 5872447-8 (Version None)
Quarter: 2008Q3

REPORT INFORMATION
  Report Type: 
  Country: None (occurrence: None)
  Receive Date: 20080905
  Receipt Date: 20080829
  Transmission Date: 20090109
  Serious: Yes (Hospitalization)
  Sender: FDA-Public Use
  Company Number: PHNU2007DE03081

PATIENT
  Sex: Female
  Weight: 56 kg

DRUGS (6)
  1. EXFORGE [Suspect]
     Indication: HYPERTENSION
     Dosage: 1 DF, QD
     Route: 048
     Dates: start: 20070601
  2. BELOC ZOK [Suspect]
     Indication: HYPERTENSION
     Dosage: 1 DF, BID
     Route: 048
     Dates: start: 20070801
  3. NEBILET [Suspect]
     Route: 065
  4. CALCIUM [Concomitant]
  5. MAGNESIUM SULFATE [Concomitant]
  6. ARCOXIA [Concomitant]

REACTIONS (5)
  - DACRYOSTENOSIS ACQUIRED [None]
  - DRY EYE [None]
  - LACRIMATION INCREASED [None]
  - PALPITATIONS [None]
  - VENTRICULAR EXTRASYSTOLES [None]
